FAERS Safety Report 5889263-3 (Version None)
Quarter: 2008Q3

REPORT INFORMATION
  Report Type: 
  Country: None (occurrence: None)
  Receive Date: 20080919
  Receipt Date: 20080908
  Transmission Date: 20090109
  Serious: Yes (Hospitalization)
  Sender: FDA-Public Use
  Company Number: CN-ROCHE-585051

PATIENT
  Age: 79 Year
  Sex: Female
  Weight: 45 kg

DRUGS (2)
  1. XELODA [Suspect]
     Indication: COLON CANCER
     Route: 048
     Dates: start: 20060301, end: 20060801
  2. XELODA [Suspect]
     Route: 048
     Dates: start: 20070101, end: 20070501

REACTIONS (2)
  - COLON CANCER [None]
  - INTESTINAL OBSTRUCTION [None]
